FAERS Safety Report 15016234 (Version 1)
Quarter: 2018Q2

REPORT INFORMATION
  Report Type: Spontaneous
  Country: GB (occurrence: GB)
  Receive Date: 20180615
  Receipt Date: 20180615
  Transmission Date: 20180711
  Serious: Yes (Congenital Anomaly, Other)
  Sender: FDA-Public Use
  Company Number: GB-MYLANLABS-2018M1038674

PATIENT
  Sex: Male

DRUGS (1)
  1. VALPROIC ACID. [Suspect]
     Active Substance: VALPROIC ACID
     Indication: EPILEPSY
     Dosage: THE MOTHER STARTED RECEIVING SODIUM VALPROATE FROM THE AGE OF 18 YEARS AND CONTINUED TO RECEIVE I...

REACTIONS (2)
  - Foetal exposure during pregnancy [Recovered/Resolved]
  - Foetal anticonvulsant syndrome [Unknown]
